FAERS Safety Report 22207868 (Version 2)
Quarter: 2023Q2

REPORT INFORMATION
  Report Type: Report from Study
  Country: CA (occurrence: CA)
  Receive Date: 20230413
  Receipt Date: 20230425
  Transmission Date: 20230721
  Serious: Yes (Other)
  Sender: FDA-Public Use
  Company Number: CA-AstraZeneca-2023A079287

PATIENT
  Age: 54 Year
  Sex: Female
  Weight: 61.7 kg

DRUGS (1)
  1. ENHERTU [Suspect]
     Active Substance: FAM-TRASTUZUMAB DERUXTECAN-NXKI
     Indication: HER2 positive breast cancer
     Dosage: 335 MG, ONCE EVERY 3 WK
     Route: 042
     Dates: start: 20230328

REACTIONS (7)
  - Dyspnoea [Recovered/Resolved]
  - Flushing [Recovered/Resolved]
  - Facial discomfort [Recovered/Resolved]
  - Back pain [Recovered/Resolved]
  - Somnolence [Unknown]
  - Off label use [Unknown]
  - Hypersensitivity [Unknown]

NARRATIVE: CASE EVENT DATE: 20230403
